FAERS Safety Report 5908922-7 (Version None)
Quarter: 2008Q4

REPORT INFORMATION
  Report Type: 
  Country: None (occurrence: None)
  Receive Date: 20081001
  Receipt Date: 20080915
  Transmission Date: 20090506
  Serious: Yes (Other)
  Sender: FDA-Public Use
  Company Number: SPV1-2008-01835

PATIENT
  Age: 6 Year
  Sex: Female
  Weight: 19.7 kg

DRUGS (1)
  1. DAYTRANA [Suspect]
     Dosage: 10 MG, 1X/DAY;QD, TRANSDERMAL
     Route: 062
     Dates: start: 20080814, end: 20080815

REACTIONS (3)
  - CHEST PAIN [None]
  - LOSS OF CONSCIOUSNESS [None]
  - SYNCOPE [None]
